FAERS Safety Report 11852169 (Version 1)
Quarter: 2015Q4

REPORT INFORMATION
  Report Type: Report from Study
  Country: AU (occurrence: AU)
  Receive Date: 20151218
  Receipt Date: 20151218
  Transmission Date: 20160305
  Serious: Yes (Other)
  Sender: FDA-Public Use
  Company Number: AU-INCYTE CORPORATION-2015IN006619

PATIENT
  Age: 68 Year
  Sex: Female

DRUGS (3)
  1. JAKAFI [Suspect]
     Active Substance: RUXOLITINIB
     Indication: POLYCYTHAEMIA VERA
  2. JAKAFI [Suspect]
     Active Substance: RUXOLITINIB
     Indication: THROMBOCYTOSIS
  3. JAKAFI [Suspect]
     Active Substance: RUXOLITINIB
     Indication: PRIMARY MYELOFIBROSIS
     Dosage: UNK
     Route: 065
     Dates: start: 2014

REACTIONS (6)
  - Thrombosis [Unknown]
  - Herpes zoster [Recovered/Resolved]
  - Weight increased [Not Recovered/Not Resolved]
  - Thyroid disorder [Recovered/Resolved]
  - Liver disorder [Unknown]
  - Abdominal pain upper [Unknown]
